FAERS Safety Report 12918346 (Version 2)
Quarter: 2016Q4

REPORT INFORMATION
  Report Type: Spontaneous
  Country: US (occurrence: US)
  Receive Date: 20161107
  Receipt Date: 20161213
  Transmission Date: 20170207
  Serious: No
  Sender: FDA-Public Use
  Company Number: US-TAIHO ONCOLOGY INC-EU-2016-02863

PATIENT
  Age: 64 Year
  Sex: Male

DRUGS (10)
  1. LONSURF [Suspect]
     Active Substance: TIPIRACIL HYDROCHLORIDE\TRIFLURIDINE
     Indication: COLON CANCER
     Route: 048
     Dates: start: 20160925
  2. ONDANSETRON [Concomitant]
     Active Substance: ONDANSETRON
     Dosage: NI
  3. PAROXETINE. [Concomitant]
     Active Substance: PAROXETINE
     Dosage: NI
  4. STIVARGA [Concomitant]
     Active Substance: REGORAFENIB
     Dosage: NI
  5. MIRALAX [Concomitant]
     Active Substance: POLYETHYLENE GLYCOL 3350
     Dosage: NI
  6. GRANISETRON [Concomitant]
     Active Substance: GRANISETRON
     Dosage: NI
  7. LORAZEPAM. [Concomitant]
     Active Substance: LORAZEPAM
     Dosage: NI
  8. LIDOCAINE. [Concomitant]
     Active Substance: LIDOCAINE
     Dosage: NI
  9. DEXAMETHASONE. [Concomitant]
     Active Substance: DEXAMETHASONE
     Dosage: NI
  10. GABAPENTIN. [Concomitant]
     Active Substance: GABAPENTIN
     Dosage: NI

REACTIONS (2)
  - Cough [Recovered/Resolved]
  - Oropharyngeal pain [Recovered/Resolved]

NARRATIVE: CASE EVENT DATE: 20161026
